FAERS Safety Report 5129571-7 (Version None)
Quarter: 2006Q4

REPORT INFORMATION
  Report Type: 
  Country: None (occurrence: None)
  Receive Date: 20061012
  Receipt Date: 20061006
  Transmission Date: 20070319
  Serious: Yes (Other)
  Sender: FDA-Public Use
  Company Number: 2006122232

PATIENT
  Sex: Female

DRUGS (1)
  1. UNISOM [Suspect]
     Dosage: UNSPECIFIED AMOUNT NIGHTLY, ORAL
     Route: 048

REACTIONS (1)
  - DRUG DEPENDENCE [None]
